FAERS Safety Report 9161926 (Version 2)
Quarter: 2013Q1

REPORT INFORMATION
  Report Type: Spontaneous
  Country: US (occurrence: None)
  Receive Date: 20130222
  Receipt Date: 20130315
  Transmission Date: 20140127
  Serious: Yes (Disabling, Other)
  Sender: FDA-Public Use
  Company Number: 2013-0158

PATIENT
  Age: 60 Year
  Sex: Male

DRUGS (3)
  1. SOMATULINE DEPOT [Suspect]
     Indication: ACROMEGALY
     Dosage: (90 MG, 1 IN 28 D), SUBCUTANEOUS?
     Route: 058
     Dates: start: 20121125
  2. PRILOSEC [Concomitant]
  3. SOMAVERT (PEGVISOMANT) [Concomitant]

REACTIONS (15)
  - Nausea [None]
  - Abdominal pain [None]
  - Influenza like illness [None]
  - Haematochezia [None]
  - Constipation [None]
  - Herpes zoster [None]
  - Cholelithiasis [None]
  - Cholelithiasis [None]
  - Headache [None]
  - Drug ineffective [None]
  - Blood alkaline phosphatase increased [None]
  - Alanine aminotransferase increased [None]
  - Asthenia [None]
  - Fatigue [None]
  - Blood glucose increased [None]
